FAERS Safety Report 18781342 (Version 2)
Quarter: 2021Q1

REPORT INFORMATION
  Report Type: Spontaneous
  Country: CO (occurrence: CO)
  Receive Date: 20210125
  Receipt Date: 20210226
  Transmission Date: 20210419
  Serious: Yes (Other)
  Sender: FDA-Public Use
  Company Number: CO-PFIZER INC-2021045912

PATIENT
  Age: 66 Year
  Sex: Female

DRUGS (1)
  1. REAMPLA [Suspect]
     Active Substance: PALBOCICLIB
     Indication: BREAST CANCER
     Dosage: 125 MG
     Route: 048
     Dates: start: 20201218

REACTIONS (5)
  - Oral pain [Unknown]
  - Oropharyngeal plaque [Unknown]
  - Throat tightness [Unknown]
  - Eating disorder [Unknown]
  - Dysphonia [Unknown]
